FAERS Safety Report 6348611-0 (Version None)
Quarter: 2009Q3

REPORT INFORMATION
  Report Type: 
  Country: None (occurrence: None)
  Receive Date: 20090911
  Receipt Date: 20070508
  Transmission Date: 20100115
  Serious: Yes (Other)
  Sender: FDA-Public Use
  Company Number: US-ASTRAZENECA-2006UW11182

PATIENT
  Age: 12916 Day
  Sex: Female
  Weight: 94.8 kg

DRUGS (25)
  1. SEROQUEL [Suspect]
     Indication: BIPOLAR DISORDER
     Route: 048
     Dates: start: 20000101
  2. SEROQUEL [Suspect]
     Indication: DEPRESSION
     Route: 048
     Dates: start: 20000101
  3. SEROQUEL [Suspect]
     Indication: POST-TRAUMATIC STRESS DISORDER
     Route: 048
     Dates: start: 20000101
  4. SEROQUEL [Suspect]
     Indication: INSOMNIA
     Route: 048
     Dates: start: 20000101
  5. SEROQUEL [Suspect]
     Dosage: 50 MG IN THE A.M, 40 MG IN THE P.M.
     Route: 048
     Dates: start: 20011128
  6. SEROQUEL [Suspect]
     Dosage: 50 MG IN THE A.M, 40 MG IN THE P.M.
     Route: 048
     Dates: start: 20011128
  7. SEROQUEL [Suspect]
     Dosage: 50 MG IN THE A.M, 40 MG IN THE P.M.
     Route: 048
     Dates: start: 20011128
  8. SEROQUEL [Suspect]
     Dosage: 50 MG IN THE A.M, 40 MG IN THE P.M.
     Route: 048
     Dates: start: 20011128
  9. ZYPREXA [Suspect]
     Dates: start: 20020101, end: 20030101
  10. ZYPREXA [Suspect]
     Dates: start: 20011128
  11. CLOZARIL [Concomitant]
     Dates: start: 20000101
  12. RISPERDAL [Concomitant]
     Dates: start: 20000101
  13. RISPERDAL [Concomitant]
     Dates: start: 20011128
  14. COCAINE [Concomitant]
     Dates: start: 19960101, end: 20000101
  15. TOPAMAX [Concomitant]
     Dosage: DOSE -100 MG IN THE AM AND 200 MG IN THE PM
     Dates: start: 20011128
  16. DEPAKOTE [Concomitant]
     Dates: start: 20011128
  17. EFFEXOR [Concomitant]
     Dates: start: 20011128
  18. WELLBUTRIN [Concomitant]
     Dates: start: 20011128
  19. GEODON [Concomitant]
     Dates: start: 20011128
  20. VISTARIL [Concomitant]
     Dates: start: 20011128
  21. ZOLOFT [Concomitant]
     Dates: start: 20021222
  22. CLONAZEPAM [Concomitant]
     Dates: start: 20021222
  23. LIPITOR [Concomitant]
     Dates: start: 20030122
  24. PLAVIX [Concomitant]
     Dates: start: 20030122
  25. TOPROL-XL [Concomitant]
     Dates: start: 20030122

REACTIONS (4)
  - DIABETES MELLITUS [None]
  - DIABETIC KETOACIDOSIS [None]
  - MYOCARDIAL INFARCTION [None]
  - OVERWEIGHT [None]
